FAERS Safety Report 15487161 (Version 1)
Quarter: 2018Q4

REPORT INFORMATION
  Report Type: Spontaneous
  Country: US (occurrence: US)
  Receive Date: 20181010
  Receipt Date: 20181010
  Transmission Date: 20190205
  Serious: Yes (Hospitalization, Other)
  Sender: FDA-Public Use
  Company Number: None

PATIENT
  Age: 58 Year
  Sex: Female
  Weight: 104.4 kg

DRUGS (2)
  1. ESCITALOPRAM [Suspect]
     Active Substance: ESCITALOPRAM OXALATE
     Indication: POST-TRAUMATIC STRESS DISORDER
     Route: 048
     Dates: start: 20180525, end: 20180627
  2. ESCITALOPRAM [Suspect]
     Active Substance: ESCITALOPRAM OXALATE
     Indication: MAJOR DEPRESSION
     Route: 048
     Dates: start: 20180525, end: 20180627

REACTIONS (4)
  - Intentional self-injury [None]
  - Emotional distress [None]
  - Suicidal ideation [None]
  - Drug withdrawal syndrome [None]

NARRATIVE: CASE EVENT DATE: 20180627
